FAERS Safety Report 6057429-8 (Version None)
Quarter: 2009Q1

REPORT INFORMATION
  Report Type: 
  Country: None (occurrence: None)
  Receive Date: 20090129
  Receipt Date: 20090121
  Transmission Date: 20090719
  Serious: Yes (Other)
  Sender: FDA-Public Use
  Company Number: CA-ELI_LILLY_AND_COMPANY-CA200901003775

PATIENT
  Sex: Female

DRUGS (3)
  1. HUMULIN N [Suspect]
     Indication: DIABETES MELLITUS
     Route: 058
  2. VENLAFAXINE [Concomitant]
  3. MIRTAZAPINE [Concomitant]

REACTIONS (1)
  - MYOCARDIAL INFARCTION [None]
